FAERS Safety Report 11117373 (Version 1)
Quarter: 2015Q2

REPORT INFORMATION
  Report Type: Spontaneous
  Country: US (occurrence: US)
  Receive Date: 20150516
  Receipt Date: 20150516
  Transmission Date: 20150821
  Serious: No
  Sender: FDA-Public Use
  Company Number: US-009507513-1504USA018268

PATIENT
  Age: 62 Year

DRUGS (2)
  1. EMEND [Suspect]
     Active Substance: APREPITANT
     Dosage: UNK
     Dates: start: 20150415, end: 20150415
  2. EMEND [Suspect]
     Active Substance: APREPITANT
     Dosage: UNK
     Dates: start: 20150416

REACTIONS (1)
  - Pelvic pain [Recovered/Resolved]

NARRATIVE: CASE EVENT DATE: 20150415
